FAERS Safety Report 10621656 (Version 1)
Quarter: 2014Q4

REPORT INFORMATION
  Report Type: Spontaneous
  Country: US (occurrence: None)
  Receive Date: 20141201
  Receipt Date: 20141201
  Transmission Date: 20150529
  Serious: Yes (Other)
  Sender: FDA-Public Use
  Company Number: None

PATIENT
  Age: 37 Year
  Sex: Female
  Weight: 105.24 kg

DRUGS (1)
  1. MIRENA [Suspect]
     Active Substance: LEVONORGESTREL

REACTIONS (8)
  - Arthralgia [None]
  - Mood altered [None]
  - Pain in extremity [None]
  - Headache [None]
  - Fatigue [None]
  - Bone pain [None]
  - Skin discolouration [None]
  - Weight increased [None]
